FAERS Safety Report 14185121 (Version 7)
Quarter: 2019Q2

REPORT INFORMATION
  Report Type: Spontaneous
  Country: FI (occurrence: FI)
  Receive Date: 20171113
  Receipt Date: 20190401
  Transmission Date: 20190711
  Serious: Yes (Hospitalization, Other)
  Sender: FDA-Public Use
  Company Number: FI-009507513-1711FIN002206

PATIENT
  Age: 68 Year
  Sex: Female
  Weight: 88.7 kg

DRUGS (20)
  1. PRIMASPAN [Concomitant]
     Active Substance: ASPIRIN
     Indication: HAEMORRHAGE
     Dosage: ONE TABLET DAILY
     Route: 048
  2. THYROXIN [Concomitant]
     Active Substance: LEVOTHYROXINE
     Indication: HYPOTHYROIDISM
     Dosage: 50 MICROGRAM (2 TABLETS), QD
     Route: 048
  3. OFTAN (POLYVINYL ALCOHOL) [Concomitant]
     Dosage: UNK
     Route: 047
  4. JANUMET [Suspect]
     Active Substance: METFORMIN HYDROCHLORIDE\SITAGLIPTIN PHOSPHATE
     Indication: DIABETES MELLITUS
     Dosage: 1 DF, BID
     Route: 048
     Dates: start: 20170227, end: 20170614
  5. TENOX (AMLODIPINE MALEATE) [Concomitant]
     Active Substance: AMLODIPINE MALEATE
     Dosage: 10 MG, WHEN NEEDED
     Route: 048
  6. DIOVAN COMP [Concomitant]
     Active Substance: HYDROCHLOROTHIAZIDE\VALSARTAN
     Indication: BLOOD PRESSURE MEASUREMENT
     Dosage: ONE TABLET DAILY
     Route: 048
  7. ATORVASTATIN [Concomitant]
     Active Substance: ATORVASTATIN
     Indication: BLOOD CHOLESTEROL
     Dosage: ONE TABLET (20 MG) DAILY
     Route: 048
  8. FASLODEX [Concomitant]
     Active Substance: FULVESTRANT
     Indication: ADJUVANT THERAPY
     Dosage: STRENGTH: 250MG/5ML; ONE INJECTION(250 MG) PER MONTH
     Route: 030
     Dates: end: 20170609
  9. DEVISOL [Concomitant]
     Dosage: 1 TABLET (20 UG), ONCE A DAY
     Route: 048
  10. CORSODYL [Concomitant]
     Active Substance: CHLORHEXIDINE GLUCONATE
     Dosage: 10 ML, PRN
     Route: 048
  11. LETROZOLE. [Concomitant]
     Active Substance: LETROZOLE
     Indication: NEOPLASM MALIGNANT
     Dosage: UNK
     Route: 065
  12. NOVORAPID [Concomitant]
     Active Substance: INSULIN ASPART
     Indication: TYPE 2 DIABETES MELLITUS
     Dosage: 3STRENGTH: 100 U/ML; 8+36+28 DAILY
     Route: 058
  13. NOVORAPID [Concomitant]
     Active Substance: INSULIN ASPART
     Dosage: 44 + 36 UNITS PER DAY
     Route: 065
  14. INSULIN GLARGINE [Suspect]
     Active Substance: INSULIN GLARGINE
     Indication: TYPE 2 DIABETES MELLITUS
     Dosage: QD, ALSO REPORTED AS SOLOSTAR U300
  15. VAGIFEM [Concomitant]
     Active Substance: ESTRADIOL
     Dosage: TWICE A WEEKS
     Route: 067
  16. VASOTEC [Concomitant]
     Active Substance: ENALAPRIL MALEATE
     Indication: NEOPLASM MALIGNANT
     Dosage: INJECTED EVERY 4TH WEEK
     Route: 065
  17. TOUJEO [Suspect]
     Active Substance: INSULIN GLARGINE
     Indication: TYPE 2 DIABETES MELLITUS
     Dosage: STRENGTH: 300 U/ML; 66 IU IN THE MORNINGS
     Route: 051
  18. PRIMASPAN [Concomitant]
     Active Substance: ASPIRIN
     Indication: CARDIOVASCULAR DISORDER
  19. METOPROLOL TARTRATE. [Concomitant]
     Active Substance: METOPROLOL TARTRATE
     Indication: BLOOD PRESSURE MEASUREMENT
     Dosage: ONE TABLET DAILY
     Route: 048
  20. PANADOL [Concomitant]
     Active Substance: ACETAMINOPHEN
     Dosage: 0.5 G, WHEN NEEDED (MAX 3 TABLETS/DAY)
     Route: 048

REACTIONS (27)
  - Breast cancer metastatic [Unknown]
  - Dizziness [Recovered/Resolved]
  - Dyspepsia [Unknown]
  - Pancreatic enzymes increased [Recovered/Resolved]
  - Fatigue [Unknown]
  - Pruritus [Not Recovered/Not Resolved]
  - Dehydration [Unknown]
  - Dizziness [Not Recovered/Not Resolved]
  - Abdominal pain upper [Unknown]
  - Blister [Not Recovered/Not Resolved]
  - Fungal infection [Unknown]
  - Amylase increased [Recovered/Resolved]
  - Nausea [Unknown]
  - Blood glucose increased [Unknown]
  - Balance disorder [Unknown]
  - Alopecia [Not Recovered/Not Resolved]
  - Liver function test increased [Unknown]
  - Rash [Not Recovered/Not Resolved]
  - Dry skin [Unknown]
  - Pancreatitis [Not Recovered/Not Resolved]
  - Blood glucose increased [Not Recovered/Not Resolved]
  - Bone disorder [Unknown]
  - Gastric disorder [Unknown]
  - Hepatic enzyme increased [Not Recovered/Not Resolved]
  - Vomiting [Recovered/Resolved]
  - Vertigo [Unknown]
  - Vulvovaginal candidiasis [Not Recovered/Not Resolved]

NARRATIVE: CASE EVENT DATE: 2017
